FAERS Safety Report 4951634-7 (Version None)
Quarter: 2006Q1

REPORT INFORMATION
  Report Type: 
  Country: None (occurrence: None)
  Receive Date: 20060320
  Receipt Date: 20060309
  Transmission Date: 20060701
  Serious: Yes (Other)
  Sender: FDA-Public Use
  Company Number: 108680ISR

PATIENT
  Age: 35 Year
  Sex: Female

DRUGS (1)
  1. GLATIRAMER ACETATE [Suspect]
     Indication: MULTIPLE SCLEROSIS
     Dosage: 20 MILLIGRAM
     Route: 058
     Dates: start: 20020401, end: 20060101

REACTIONS (5)
  - CARCINOMA IN SITU OF SKIN [None]
  - DYSPLASTIC NAEVUS SYNDROME [None]
  - MELANOCYTIC NAEVUS [None]
  - PINGUECULA [None]
  - PRECANCEROUS CELLS PRESENT [None]
